FAERS Safety Report 12482267 (Version 5)
Quarter: 2019Q2

REPORT INFORMATION
  Report Type: Report from Study
  Country: US (occurrence: US)
  Receive Date: 20160620
  Receipt Date: 20190425
  Transmission Date: 20190711
  Serious: Yes (Other)
  Sender: FDA-Public Use
  Company Number: PHHY2016US084041

PATIENT
  Age: 38 Year
  Sex: Male

DRUGS (1)
  1. GILENYA [Suspect]
     Active Substance: FINGOLIMOD HYDROCHLORIDE
     Indication: MULTIPLE SCLEROSIS
     Dosage: UNK, QD
     Route: 048

REACTIONS (13)
  - Dry eye [Recovered/Resolved]
  - Melanocytic naevus [Unknown]
  - Joint dislocation [Recovered/Resolved]
  - Alanine aminotransferase increased [Unknown]
  - Aspartate aminotransferase increased [Unknown]
  - Vision blurred [Recovered/Resolved]
  - Molluscum contagiosum [Recovered/Resolved]
  - Muscular weakness [Recovered/Resolved]
  - Lymphocyte count decreased [Unknown]
  - Dyspnoea [Unknown]
  - Cataract cortical [Unknown]
  - Vitreous floaters [Unknown]
  - Hordeolum [Recovered/Resolved]

NARRATIVE: CASE EVENT DATE: 20160406
